FAERS Safety Report 5418073-6 (Version None)
Quarter: 2007Q3

REPORT INFORMATION
  Report Type: 
  Country: None (occurrence: None)
  Receive Date: 20070817
  Receipt Date: 20070807
  Transmission Date: 20080115
  Serious: Yes (Other)
  Sender: FDA-Public Use
  Company Number: GR-AMGEN-UK230860

PATIENT
  Age: 73 Year
  Sex: Female

DRUGS (4)
  1. ARANESP [Suspect]
     Indication: ANAEMIA OF MALIGNANT DISEASE
     Route: 065
     Dates: start: 20041209, end: 20060510
  2. EPREX [Suspect]
     Route: 058
     Dates: start: 20060518, end: 20070217
  3. ALLOPURINOL [Concomitant]
     Route: 065
     Dates: start: 20050825, end: 20070517
  4. BLOOD, WHOLE [Concomitant]
     Route: 065

REACTIONS (2)
  - APLASIA PURE RED CELL [None]
  - THERAPEUTIC RESPONSE DECREASED [None]
